FAERS Safety Report 6959480-X (Version None)
Quarter: 2010Q3

REPORT INFORMATION
  Report Type: 
  Country: None (occurrence: None)
  Receive Date: 20100827
  Receipt Date: 20100813
  Transmission Date: 20110219
  Serious: Yes (Hospitalization, Other)
  Sender: FDA-Public Use
  Company Number: AUR-APL-2010-02091

PATIENT
  Age: 53 Year
  Sex: Male

DRUGS (3)
  1. RISPERIDONE [Suspect]
     Indication: SCHIZOPHRENIA
  2. TRAZODONE HCL [Suspect]
     Indication: SCHIZOPHRENIA
  3. VARENICLINE [Concomitant]

REACTIONS (5)
  - DEPRESSION [None]
  - DRUG INTERACTION [None]
  - MENTAL DISORDER [None]
  - SCHIZOPHRENIA [None]
  - STRESS [None]
